FAERS Safety Report 13828078 (Version 1)
Quarter: 2017Q3

REPORT INFORMATION
  Report Type: Spontaneous
  Country: US (occurrence: US)
  Receive Date: 20170803
  Receipt Date: 20170803
  Transmission Date: 20171127
  Serious: No
  Sender: FDA-Public Use
  Company Number: US-GLENMARK PHARMACEUTICALS-2017GMK027786

PATIENT

DRUGS (1)
  1. POTASSIUM CHLORIDE ER CAPSULES [Suspect]
     Active Substance: POTASSIUM CHLORIDE
     Indication: PRODUCT USED FOR UNKNOWN INDICATION
     Dosage: UNK
     Route: 048
     Dates: start: 20170526

REACTIONS (6)
  - Diarrhoea [Unknown]
  - Nausea [Unknown]
  - Product odour abnormal [Unknown]
  - Product size issue [Unknown]
  - Product use complaint [Unknown]
  - Muscle spasms [Unknown]
